FAERS Safety Report 14616810 (Version 2)
Quarter: 2018Q2

REPORT INFORMATION
  Report Type: Report from Study
  Country: FR (occurrence: FR)
  Receive Date: 20180309
  Receipt Date: 20180419
  Transmission Date: 20180711
  Serious: Yes (Hospitalization, Other)
  Sender: FDA-Public Use
  Company Number: FR-BRISTOL-MYERS SQUIBB COMPANY-BMS-2018-013134

PATIENT
  Sex: Female

DRUGS (2)
  1. TOCILIZUMAB. [Suspect]
     Active Substance: TOCILIZUMAB
     Indication: PRODUCT USED FOR UNKNOWN INDICATION
     Dosage: 162 MG, UNK
     Route: 065
  2. ABATACEPT [Suspect]
     Active Substance: ABATACEPT
     Indication: RHEUMATOID ARTHRITIS
     Dosage: 125 MG, QWK
     Route: 058
     Dates: start: 20151021, end: 20160618

REACTIONS (7)
  - Drug ineffective [Unknown]
  - Fracture [Unknown]
  - Hypergammaglobulinaemia [Recovered/Resolved]
  - Fall [Unknown]
  - Contraindicated product administered [Unknown]
  - Discomfort [Unknown]
  - Joint injury [Unknown]

NARRATIVE: CASE EVENT DATE: 201606
